FAERS Safety Report 13285967 (Version 1)
Quarter: 2017Q1

REPORT INFORMATION
  Report Type: Spontaneous
  Country: BR (occurrence: BR)
  Receive Date: 20170302
  Receipt Date: 20170302
  Transmission Date: 20170428
  Serious: Yes (Other)
  Sender: FDA-Public Use
  Company Number: BR-BAYER-2017-035832

PATIENT
  Age: 40 Year
  Sex: Female

DRUGS (3)
  1. QLAIRA [Suspect]
     Active Substance: DIENOGEST\ESTRADIOL VALERATE
     Indication: VAGINAL HAEMORRHAGE
     Dosage: 1 DF, QD
     Route: 048
     Dates: start: 201611
  2. SERTRALINE [Concomitant]
     Active Substance: SERTRALINE HYDROCHLORIDE
     Indication: STRESS
     Dosage: 0.5 DF, PRN
     Route: 048
  3. QLAIRA [Suspect]
     Active Substance: DIENOGEST\ESTRADIOL VALERATE
     Indication: CONTRACEPTION

REACTIONS (5)
  - Vomiting [Recovered/Resolved]
  - Abnormal withdrawal bleeding [Not Recovered/Not Resolved]
  - Cervicitis [Recovered/Resolved]
  - Pneumonia [Recovered/Resolved]
  - Uterine pain [Recovered/Resolved]

NARRATIVE: CASE EVENT DATE: 201701
